FAERS Safety Report 9435093 (Version 3)
Quarter: 2015Q1

REPORT INFORMATION
  Report Type: Spontaneous
  Country: US (occurrence: US)
  Receive Date: 20130801
  Receipt Date: 20150311
  Transmission Date: 20150721
  Serious: Yes (Hospitalization, Other)
  Sender: FDA-Public Use
  Company Number: US-BAYER-2013-092735

PATIENT
  Age: 22 Year
  Sex: Female
  Weight: 91 kg

DRUGS (2)
  1. MIRENA [Suspect]
     Active Substance: LEVONORGESTREL
     Indication: CONTRACEPTION
     Dosage: 20 MCG/24HR, CONT
     Dates: start: 200902
  2. MIRENA [Suspect]
     Active Substance: LEVONORGESTREL
     Indication: CONTRACEPTION
     Dosage: 20 MCG/24HR, CONT
     Route: 015
     Dates: start: 20110214, end: 20121224

REACTIONS (14)
  - Pregnancy with contraceptive device [None]
  - Abdominal pain lower [None]
  - Off label use [None]
  - Depression [None]
  - Abortion spontaneous [None]
  - Post-traumatic stress disorder [None]
  - Injury [None]
  - Pain [None]
  - Fear of pregnancy [None]
  - Abortion spontaneous [None]
  - Device physical property issue [None]
  - Anxiety [None]
  - Drug ineffective [None]
  - Haemorrhage in pregnancy [None]

NARRATIVE: CASE EVENT DATE: 2012
